FAERS Safety Report 5049479-5 (Version None)
Quarter: 2006Q3

REPORT INFORMATION
  Report Type: 
  Country: None (occurrence: None)
  Receive Date: 20060711
  Receipt Date: 20060711
  Transmission Date: 20061208
  Serious: Yes (Life-Threatening, Hospitalization)
  Sender: FDA-Public Use
  Company Number: None

PATIENT
  Age: 39 Year
  Sex: Female

DRUGS (2)
  1. LISINOPRIL [Suspect]
     Dosage: 20 MG QDAY PO
     Route: 048
     Dates: start: 20060609, end: 20060610
  2. LOSARTAN POTASSIUM [Suspect]
     Dosage: 100 MG QDAY PO
     Route: 048
     Dates: start: 20060609, end: 20060610

REACTIONS (1)
  - ANGIONEUROTIC OEDEMA [None]
